FAERS Safety Report 11885056 (Version 1)
Quarter: 2015Q4

REPORT INFORMATION
  Report Type: Spontaneous
  Country: US (occurrence: None)
  Receive Date: 20151231
  Receipt Date: 20151231
  Transmission Date: 20160305
  Serious: Yes (Life-Threatening, Disabling, Other)
  Sender: FDA-Public Use
  Company Number: None

PATIENT
  Age: 33 Year
  Sex: Female

DRUGS (1)
  1. ARMOUR THYROID [Suspect]
     Active Substance: THYROID, PORCINE\THYROID, UNSPECIFIED

REACTIONS (5)
  - Drug dispensed to wrong patient [None]
  - Underdose [None]
  - Hyperthyroidism [None]
  - Incorrect dose administered [None]
  - Overdose [None]

NARRATIVE: CASE EVENT DATE: 20151201
